FAERS Safety Report 5941100-4 (Version None)
Quarter: 2008Q4

REPORT INFORMATION
  Report Type: 
  Country: None (occurrence: None)
  Receive Date: 20081104
  Receipt Date: 20081022
  Transmission Date: 20090506
  Serious: Yes (Hospitalization)
  Sender: FDA-Public Use
  Company Number: CA-ELI_LILLY_AND_COMPANY-CA200807002609

PATIENT
  Sex: Female
  Weight: 56 kg

DRUGS (12)
  1. CYMBALTA [Suspect]
     Indication: PAIN
     Dosage: 60 MG, DAILY (1/D)
     Route: 048
     Dates: start: 20080403, end: 20080407
  2. CARDIZEM [Concomitant]
  3. LOZIDE [Concomitant]
  4. FOSAMAX [Concomitant]
  5. CARBOCAL D [Concomitant]
  6. ATIVAN [Concomitant]
  7. ASAPHEN [Concomitant]
  8. MOTILIUM [Concomitant]
  9. STATEX [Concomitant]
  10. COLACE [Concomitant]
  11. SENOKOT [Concomitant]
  12. LACTULOSE [Concomitant]

REACTIONS (4)
  - INAPPROPRIATE ANTIDIURETIC HORMONE SECRETION [None]
  - LUNG INFILTRATION [None]
  - SEPTIC SHOCK [None]
  - URINARY RETENTION [None]
